FAERS Safety Report 25577703 (Version 2)
Quarter: 2025Q3

REPORT INFORMATION
  Report Type: Spontaneous
  Country: US (occurrence: US)
  Receive Date: 20250718
  Receipt Date: 20250718
  Transmission Date: 20251020
  Serious: No
  Sender: NOVO NORDISK
  Company Number: US-NOVOPROD-1309638

PATIENT
  Age: 76 Year
  Sex: Male

DRUGS (3)
  1. RYBELSUS [Suspect]
     Active Substance: SEMAGLUTIDE
     Indication: Type 2 diabetes mellitus
     Route: 048
     Dates: start: 20240216
  2. RYBELSUS [Suspect]
     Active Substance: SEMAGLUTIDE
     Route: 048
     Dates: start: 20240515
  3. RYBELSUS [Suspect]
     Active Substance: SEMAGLUTIDE
     Indication: Type 2 diabetes mellitus
     Route: 048
     Dates: start: 20240503

REACTIONS (3)
  - Memory impairment [Unknown]
  - Balance disorder [Unknown]
  - Wrong technique in product usage process [Unknown]

NARRATIVE: CASE EVENT DATE: 20240503
